FAERS Safety Report 6841225-5 (Version None)
Quarter: 2010Q3

REPORT INFORMATION
  Report Type: 
  Country: None (occurrence: None)
  Receive Date: 20100714
  Receipt Date: 20070629
  Transmission Date: 20110219
  Serious: No
  Sender: FDA-Public Use
  Company Number: US-PFIZER INC-2007053713

PATIENT
  Sex: Female

DRUGS (8)
  1. CHANTIX [Suspect]
     Indication: SMOKING CESSATION THERAPY
     Dates: start: 20070618
  2. ATENOLOL [Concomitant]
  3. CELEBREX [Concomitant]
  4. TERIPARATIDE [Concomitant]
  5. ZANTAC [Concomitant]
  6. CALCIUM [Concomitant]
  7. COSAMIN [Concomitant]
  8. CYMBALTA [Concomitant]

REACTIONS (3)
  - ABDOMINAL DISCOMFORT [None]
  - EMOTIONAL DISORDER [None]
  - HYPERHIDROSIS [None]
